FAERS Safety Report 5522882-2 (Version None)
Quarter: 2007Q4

REPORT INFORMATION
  Report Type: 
  Country: None (occurrence: None)
  Receive Date: 20071115
  Receipt Date: 20071101
  Transmission Date: 20080405
  Serious: Yes (Life-Threatening, Other)
  Sender: FDA-Public Use
  Company Number: 163706ISR

PATIENT
  Sex: Female

DRUGS (2)
  1. BECLOMETHASONE DIPROPIONATE [Suspect]
     Indication: ASTHMA
     Dosage: AS REQUIRED RESPIRATORY (INHALATION)
     Route: 055
  2. FORMOTEROL FUMARATE [Concomitant]

REACTIONS (9)
  - CRYING [None]
  - FEAR OF DEATH [None]
  - HYPOAESTHESIA [None]
  - MALAISE [None]
  - MUSCLE SPASMS [None]
  - NERVOUSNESS [None]
  - TACHYCARDIA [None]
  - VASODILATATION [None]
  - VENOUS PRESSURE INCREASED [None]
